FAERS Safety Report 6041929-0 (Version None)
Quarter: 2009Q1

REPORT INFORMATION
  Report Type: 
  Country: None (occurrence: None)
  Receive Date: 20090116
  Receipt Date: 20080501
  Transmission Date: 20090719
  Serious: No
  Sender: FDA-Public Use
  Company Number: US-BAYER-200811768BCC

PATIENT
  Sex: Female

DRUGS (1)
  1. ALEVE (CAPLET) [Suspect]
     Indication: DRUG USE FOR UNKNOWN INDICATION
     Dosage: AS USED: 660 MG  UNIT DOSE: 220 MG
     Route: 048
     Dates: start: 20080501

REACTIONS (4)
  - BURNING SENSATION [None]
  - PANIC REACTION [None]
  - PRURITUS [None]
  - URTICARIA [None]
